FAERS Safety Report 9345349 (Version 3)
Quarter: 2013Q2

REPORT INFORMATION
  Report Type: Spontaneous
  Country: JP (occurrence: JP)
  Receive Date: 20130613
  Receipt Date: 20130619
  Transmission Date: 20140414
  Serious: Yes (Hospitalization)
  Sender: FDA-Public Use
  Company Number: JP-ROCHE-1235955

PATIENT
  Age: 68 Year
  Sex: Male

DRUGS (3)
  1. XELODA [Suspect]
     Indication: COLON CANCER METASTATIC
     Dosage: DOSAGE IS UNCERTAIN
     Route: 048
     Dates: start: 2011
  2. AVASTIN [Suspect]
     Indication: COLON CANCER METASTATIC
     Route: 041
     Dates: start: 2011
  3. ELPLAT [Concomitant]
     Indication: COLON CANCER METASTATIC
     Dosage: DOSAGE IS UNCERTAIN.
     Route: 041
     Dates: start: 2011, end: 2012

REACTIONS (2)
  - Mechanical ileus [Recovering/Resolving]
  - Anal abscess [Recovering/Resolving]
